FAERS Safety Report 9053470 (Version 1)
Quarter: 2013Q1

REPORT INFORMATION
  Report Type: Spontaneous
  Country: US (occurrence: None)
  Receive Date: 20130117
  Receipt Date: 20130117
  Transmission Date: 20140127
  Serious: Yes (Death, Other)
  Sender: FDA-Public Use
  Company Number: 2013MA000199

PATIENT
  Age: 56 Year
  Sex: Female

DRUGS (6)
  1. KADIAN [Suspect]
     Indication: PRODUCT USED FOR UNKNOWN INDICATION
     Route: 048
  2. LAXATIVE (STIMULANT) [Suspect]
     Route: 048
  3. CYCLOBENZAPRINE [Suspect]
     Route: 048
  4. AMITRIPTYLINE [Suspect]
     Route: 048
  5. PROMETHAZINE HCL [Suspect]
     Route: 048
  6. ETHANOL [Suspect]
     Route: 048

REACTIONS (1)
  - Drug abuse [None]
